FAERS Safety Report 19518625 (Version 1)
Quarter: 2021Q3

REPORT INFORMATION
  Report Type: Spontaneous
  Country: US (occurrence: US)
  Receive Date: 20210709
  Receipt Date: 20210709
  Transmission Date: 20211014
  Serious: No
  Sender: FDA-Public Use
  Company Number: None

PATIENT
  Age: 81 Year
  Sex: Male
  Weight: 83.1 kg

DRUGS (13)
  1. CARVEDILOL. [Suspect]
     Active Substance: CARVEDILOL
  2. CYCLOPHOSPHAMIDE 50MG CAP [Suspect]
     Active Substance: CYCLOPHOSPHAMIDE
     Indication: AMYLOIDOSIS
     Route: 048
     Dates: start: 20210129
  3. ELIQUIS [Suspect]
     Active Substance: APIXABAN
  4. DECADRON [Suspect]
     Active Substance: DEXAMETHASONE
  5. VALACYCLOVIR [Suspect]
     Active Substance: VALACYCLOVIR HYDROCHLORIDE
  6. RENVELA [Suspect]
     Active Substance: SEVELAMER CARBONATE
  7. CYCLOPHOSPHAMIDE 25MG CAP [Suspect]
     Active Substance: CYCLOPHOSPHAMIDE
     Indication: AMYLOIDOSIS
     Route: 048
     Dates: start: 20210129
  8. FAMOTIDINE. [Suspect]
     Active Substance: FAMOTIDINE
  9. PROCHLORPERAZINE. [Suspect]
     Active Substance: PROCHLORPERAZINE
  10. ONDANSETRON [Suspect]
     Active Substance: ONDANSETRON
  11. ACETAMINOPHEN. [Suspect]
     Active Substance: ACETAMINOPHEN
  12. NEPHRO VITE RX [Suspect]
     Active Substance: ASCORBIC ACID\BIOTIN\CALCIUM PANTOTHENATE\CYANOCOBALAMIN\FOLIC ACID\NIACINAMIDE\PYRIDOXINE HYDROCHLORIDE\RIBOFLAVIN\THIAMINE MONONITRATE
  13. TUMS [Suspect]
     Active Substance: CALCIUM CARBONATE

REACTIONS (2)
  - Drug ineffective [None]
  - Therapy cessation [None]
